FAERS Safety Report 4318046-0 (Version None)
Quarter: 2004Q1

REPORT INFORMATION
  Report Type: 
  Country: None (occurrence: None)
  Receive Date: 20040317
  Receipt Date: 20031031
  Transmission Date: 20041129
  Serious: Yes (Hospitalization)
  Sender: FDA-Public Use
  Company Number: PHNU2003DE03926

PATIENT
  Age: 54 Year
  Sex: Male
  Weight: 74 kg

DRUGS (8)
  1. TRILEPTAL [Suspect]
     Indication: EPILEPSY
     Dosage: 150 MG, BID
     Route: 048
     Dates: start: 20021101
  2. TRILEPTAL [Suspect]
     Dosage: 300 MG, BID
     Route: 048
     Dates: end: 20030801
  3. TRILEPTAL [Suspect]
     Dosage: 750 MG/D
     Route: 048
     Dates: start: 20030801
  4. PRAVASIN [Suspect]
     Dosage: 20 MG/D
  5. ASPIRIN [Concomitant]
  6. PLAVIX [Concomitant]
  7. METOPROLOL SUCCINATE [Suspect]
     Dosage: 95 MG/D
     Dates: start: 20021101
  8. OMNIC [Concomitant]

REACTIONS (13)
  - ALANINE AMINOTRANSFERASE INCREASED [None]
  - ASPARTATE AMINOTRANSFERASE INCREASED [None]
  - BLOOD CREATINE PHOSPHOKINASE INCREASED [None]
  - CONVULSION [None]
  - DIZZINESS [None]
  - DRUG LEVEL BELOW THERAPEUTIC [None]
  - GAMMA-GLUTAMYLTRANSFERASE INCREASED [None]
  - HEPATIC ENZYME INCREASED [None]
  - HYPONATRAEMIA [None]
  - MEAN CELL HAEMOGLOBIN DECREASED [None]
  - MEAN CELL VOLUME ABNORMAL [None]
  - RED BLOOD CELL COUNT ABNORMAL [None]
  - WEIGHT INCREASED [None]
